FAERS Safety Report 26068078 (Version 1)
Quarter: 2025Q4

REPORT INFORMATION
  Report Type: Spontaneous
  Country: JP (occurrence: JP)
  Receive Date: 20251120
  Receipt Date: 20251120
  Transmission Date: 20260117
  Serious: Yes (Other)
  Sender: MERCK SHARP & DOHME LLC
  Company Number: JP-009507513-2350478

PATIENT
  Age: 7 Decade
  Sex: Male

DRUGS (3)
  1. KEYTRUDA [Suspect]
     Active Substance: PEMBROLIZUMAB
     Indication: Bile duct cancer
     Route: 041
     Dates: start: 202507
  2. GEMCITABINE [Concomitant]
     Active Substance: GEMCITABINE
     Dates: start: 202507
  3. CISPLATIN [Concomitant]
     Active Substance: CISPLATIN
     Dates: start: 202507

REACTIONS (2)
  - Cholangitis [Recovered/Resolved]
  - Adrenocorticotropic hormone deficiency [Recovered/Resolved]

NARRATIVE: CASE EVENT DATE: 20250901
